FAERS Safety Report 5049473-4 (Version None)
Quarter: 2006Q3

REPORT INFORMATION
  Report Type: 
  Country: None (occurrence: None)
  Receive Date: 20060711
  Receipt Date: 20060711
  Transmission Date: 20061208
  Serious: Yes (Hospitalization)
  Sender: FDA-Public Use
  Company Number: None

PATIENT
  Age: 57 Year
  Sex: Male
  Weight: 55 kg

DRUGS (11)
  1. BUSPIRONE HCL [Suspect]
     Indication: DYSPNOEA
     Dosage: 10MG  1 QD X3 DAYS PO  ; 10MG BID PO
     Route: 048
     Dates: start: 20060522, end: 20060524
  2. BUSPIRONE HCL [Suspect]
     Indication: DYSPNOEA
     Dosage: 10MG  1 QD X3 DAYS PO  ; 10MG BID PO
     Route: 048
     Dates: start: 20060525, end: 20060601
  3. TRAVATAN [Concomitant]
  4. ROBITUSSIN AC [Concomitant]
  5. COMBIVENT [Concomitant]
  6. ALBUTEROL [Concomitant]
  7. TESSALAN PERLE [Concomitant]
  8. FENTANYL TRANSDERMAL SYSTEM [Concomitant]
  9. XYLOCAINE [Concomitant]
  10. MAALOX FAST BLOCKER [Concomitant]
  11. DEXAMETHASOME [Concomitant]

REACTIONS (5)
  - DIARRHOEA [None]
  - FAECES DISCOLOURED [None]
  - PHARYNGOLARYNGEAL PAIN [None]
  - RADIATION INJURY [None]
  - VOMITING [None]
